FAERS Safety Report 5739092-6 (Version None)
Quarter: 2008Q2

REPORT INFORMATION
  Report Type: 
  Country: None (occurrence: None)
  Receive Date: 20080515
  Receipt Date: 20080326
  Transmission Date: 20081010
  Serious: Yes (Life-Threatening)
  Sender: FDA-Public Use
  Company Number: TR-BAYER-200816929GPV

PATIENT
  Age: 53 Year
  Sex: Male
  Weight: 85 kg

DRUGS (2)
  1. SOTALOL HCL [Suspect]
     Indication: ARRHYTHMIA PROPHYLAXIS
  2. DILTIAZEM [Interacting]
     Indication: PALPITATIONS
     Dosage: TOTAL DAILY DOSE: 90 MG

REACTIONS (4)
  - BRADYCARDIA [None]
  - CARDIOGENIC SHOCK [None]
  - DIZZINESS [None]
  - HYPOTENSION [None]
